FAERS Safety Report 14525900 (Version 1)
Quarter: 2018Q1

REPORT INFORMATION
  Report Type: Spontaneous
  Country: US (occurrence: US)
  Receive Date: 20180212
  Receipt Date: 20180212
  Transmission Date: 20180509
  Serious: Yes (Hospitalization)
  Sender: FDA-Public Use
  Company Number: None

PATIENT
  Age: 60 Year
  Sex: Male
  Weight: 90.72 kg

DRUGS (1)
  1. LISINOPRIL. [Suspect]
     Active Substance: LISINOPRIL
     Indication: HYPERTENSION
     Route: 048
     Dates: start: 20050107, end: 20170617

REACTIONS (5)
  - Lip swelling [None]
  - Swelling face [None]
  - Hyperkalaemia [None]
  - Blood creatinine increased [None]
  - Angioedema [None]

NARRATIVE: CASE EVENT DATE: 20170622
